FAERS Safety Report 8614032-0 (Version None)
Quarter: 2012Q2

REPORT INFORMATION
  Report Type: 
  Country: None (occurrence: None)
  Receive Date: 20120423
  Receipt Date: 20090501
  Transmission Date: 20120825
  Serious: Yes (Other)
  Sender: FDA-Public Use
  Company Number: PHEH2009US04354

PATIENT
  Age: 76 Year
  Sex: Male

DRUGS (11)
  1. QVAR [Concomitant]
  2. NITROGYCERIN ^A.L.^ (GLYCERYL TRINITRATE) [Concomitant]
  3. DOXAZOSIN MESYLATE [Concomitant]
  4. VITAMIN B6 [Concomitant]
  5. ACIPHEX [Concomitant]
  6. FERRO-SEQUELS (DOCUSATE SODIUM, FERROUS FUMARATE) [Concomitant]
  7. ASPIRIN [Concomitant]
  8. EXJADE [Suspect]
     Indication: MYELODYSPLASTIC SYNDROME
     Dosage: 1000 MG, QD, ORAL
     Route: 048
     Dates: start: 20081125, end: 20090401
  9. PLAVIX [Concomitant]
  10. PROCRIT [Concomitant]
  11. DILTIAZEM [Concomitant]

REACTIONS (9)
  - DISEASE PROGRESSION [None]
  - TRANSFUSION [None]
  - MYELODYSPLASTIC SYNDROME [None]
  - BLOOD CREATININE INCREASED [None]
  - TRANSFERRIN SATURATION INCREASED [None]
  - SERUM FERRITIN INCREASED [None]
  - BLOOD IRON INCREASED [None]
  - IRON BINDING CAPACITY TOTAL DECREASED [None]
  - TRANSFERRIN DECREASED [None]
